FAERS Safety Report 6290613-7 (Version None)
Quarter: 2009Q3

REPORT INFORMATION
  Report Type: 
  Country: None (occurrence: None)
  Receive Date: 20090727
  Receipt Date: 20080901
  Transmission Date: 20100115
  Serious: Yes (Other)
  Sender: FDA-Public Use
  Company Number: OMPQ-PR-0807S-0496

PATIENT
  Age: 54 Year
  Sex: Female
  Weight: 63.5036 kg

DRUGS (2)
  1. OMNIPAQUE 140 [Suspect]
     Indication: OVARIAN CANCER
     Dosage: 100 ML, SINGLE DOSE, I.V.
     Route: 042
     Dates: start: 20080529, end: 20080529
  2. IRON (UNSPECIFIED) [Concomitant]

REACTIONS (2)
  - HYPERSENSITIVITY [None]
  - TONIC CLONIC MOVEMENTS [None]
